FAERS Safety Report 5724269-6 (Version None)
Quarter: 2008Q2

REPORT INFORMATION
  Report Type: 
  Country: None (occurrence: None)
  Receive Date: 20080424
  Receipt Date: 20080305
  Transmission Date: 20081010
  Serious: Yes (Other)
  Sender: FDA-Public Use
  Company Number: TEST00208000643

PATIENT
  Sex: Male
  Weight: 114 kg

DRUGS (5)
  1. ANDROGEL [Suspect]
     Indication: BLOOD TESTOSTERONE DECREASED
     Dosage: SEE IMAGE
     Dates: end: 20080219
  2. ANDROGEL [Suspect]
     Indication: BLOOD TESTOSTERONE DECREASED
     Dosage: SEE IMAGE
     Dates: start: 20070310
  3. ZOCOR [Concomitant]
  4. COZAAR [Concomitant]
  5. LOTREL [Concomitant]

REACTIONS (2)
  - NEOPLASM PROSTATE [None]
  - PROSTATE CANCER [None]
